FAERS Safety Report 5233133-0 (Version None)
Quarter: 2007Q1

REPORT INFORMATION
  Report Type: 
  Country: None (occurrence: None)
  Receive Date: 20070207
  Receipt Date: 20070129
  Transmission Date: 20070707
  Serious: Yes (Other)
  Sender: FDA-Public Use
  Company Number: NO-PFIZER INC-2007006369

PATIENT
  Age: 48 Year
  Sex: Male

DRUGS (6)
  1. LIPITOR [Suspect]
     Route: 048
  2. COZAAR [Concomitant]
  3. SELO-ZOK [Concomitant]
  4. METFORMIN HCL [Concomitant]
  5. NEXIUM [Concomitant]
  6. ORUDIS [Concomitant]

REACTIONS (2)
  - DEPRESSION [None]
  - SUICIDAL IDEATION [None]
